APPROVED DRUG PRODUCT: MONOBASIC SODIUM PHOSPHATE AND DIBASIC SODIUM PHOSPHATE
Active Ingredient: SODIUM PHOSPHATE, DIBASIC, ANHYDROUS; SODIUM PHOSPHATE, MONOBASIC, MONOHYDRATE
Strength: 0.398GM;1.102GM
Dosage Form/Route: TABLET;ORAL
Application: A079247 | Product #001
Applicant: NOVEL LABORATORIES INC
Approved: Dec 30, 2011 | RLD: No | RS: Yes | Type: RX